FAERS Safety Report 10866931 (Version 1)
Quarter: 2015Q1

REPORT INFORMATION
  Report Type: Spontaneous
  Country: US (occurrence: None)
  Receive Date: 20150220
  Receipt Date: 20150220
  Transmission Date: 20150721
  Serious: Yes (Other)
  Sender: FDA-Public Use
  Company Number: None

PATIENT
  Age: 49 Year
  Sex: Female
  Weight: 52.16 kg

DRUGS (4)
  1. SEVOFLURANE. [Suspect]
     Active Substance: SEVOFLURANE
     Indication: SHOULDER OPERATION
     Dosage: 1 SURGERY
  2. MULTIVITAMINS [Concomitant]
     Active Substance: VITAMINS
     Dosage: 1  SURGERY
  3. SEVOFLURANE. [Suspect]
     Active Substance: SEVOFLURANE
     Indication: ANAESTHESIA
     Dosage: 1 SURGERY
  4. ARMOUR THYROID [Concomitant]
     Active Substance: THYROID, PORCINE\THYROID, UNSPECIFIED

REACTIONS (11)
  - Burning sensation [None]
  - Choking [None]
  - Hypersensitivity [None]
  - Rash pruritic [None]
  - Post procedural complication [None]
  - Fatigue [None]
  - Somnolence [None]
  - Throat irritation [None]
  - Peripheral swelling [None]
  - Impaired healing [None]
  - Eye irritation [None]

NARRATIVE: CASE EVENT DATE: 20141124
